FAERS Safety Report 23778214 (Version 1)
Quarter: 2024Q2

REPORT INFORMATION
  Report Type: Spontaneous
  Country: MA (occurrence: MA)
  Receive Date: 20240424
  Receipt Date: 20240424
  Transmission Date: 20240716
  Serious: Yes (Other)
  Sender: FDA-Public Use
  Company Number: MA-PFIZER INC-PV202400053254

PATIENT
  Sex: Female

DRUGS (1)
  1. IBRANCE [Suspect]
     Active Substance: PALBOCICLIB
     Dosage: 125, DOSE UNITS AND FREQUENCY UNKNOWN
     Route: 048
     Dates: start: 20231020, end: 20240407

REACTIONS (2)
  - Brain injury [Not Recovered/Not Resolved]
  - Pathological fracture [Not Recovered/Not Resolved]
